FAERS Safety Report 14954864 (Version 1)
Quarter: 2018Q2

REPORT INFORMATION
  Report Type: Spontaneous
  Country: US (occurrence: US)
  Receive Date: 20180530
  Receipt Date: 20180530
  Transmission Date: 20180711
  Serious: No
  Sender: FDA-Public Use
  Company Number: PHEH2018US020523

PATIENT
  Sex: Male

DRUGS (2)
  1. AFINITOR [Suspect]
     Active Substance: EVEROLIMUS
     Indication: RENAL CANCER
     Dosage: 5 MG, QD
     Route: 048
  2. LENVIMA [Suspect]
     Active Substance: LENVATINIB
     Indication: RENAL CANCER
     Dosage: 10 MG, QD
     Route: 048

REACTIONS (8)
  - Nausea [Recovered/Resolved]
  - Dyspnoea [Recovering/Resolving]
  - Blood glucose increased [Recovered/Resolved]
  - Hypertension [Recovering/Resolving]
  - Headache [Recovered/Resolved]
  - Polycythaemia [Recovered/Resolved]
  - Stomatitis [Recovering/Resolving]
  - Fatigue [Recovering/Resolving]
